FAERS Safety Report 8054892-8 (Version None)
Quarter: 2012Q1

REPORT INFORMATION
  Report Type: 
  Country: None (occurrence: None)
  Receive Date: 20120119
  Receipt Date: 20120113
  Transmission Date: 20120608
  Serious: No
  Sender: FDA-Public Use
  Company Number: US-PFIZER INC-2012010947

PATIENT
  Sex: Male
  Weight: 68.027 kg

DRUGS (1)
  1. SONATA [Suspect]
     Indication: INSOMNIA
     Dosage: 20 MG, 1X/DAY
     Route: 048
     Dates: start: 20110101

REACTIONS (1)
  - DRUG SCREEN FALSE POSITIVE [None]
